FAERS Safety Report 4435941-2 (Version None)
Quarter: 2004Q3

REPORT INFORMATION
  Report Type: 
  Country: None (occurrence: None)
  Receive Date: 20040726
  Receipt Date: 20040304
  Transmission Date: 20050211
  Serious: No
  Sender: FDA-Public Use
  Company Number: USA031152482

PATIENT
  Age: 53 Year
  Sex: Female

DRUGS (8)
  1. FORTEO [Suspect]
     Indication: OSTEOPOROSIS
     Dosage: 20 UG/1 DAY
     Dates: start: 20031104
  2. FLUOXETINE HCL [Concomitant]
  3. LITHIUM [Concomitant]
  4. CLONAZEPAM [Concomitant]
  5. PREMARIN [Concomitant]
  6. PROGESTERONE [Concomitant]
  7. TRILEPTAL [Concomitant]
  8. TRAZADONE (TRAZODONE) [Concomitant]

REACTIONS (4)
  - DIZZINESS [None]
  - HEADACHE [None]
  - INJECTION SITE ERYTHEMA [None]
  - NAUSEA [None]
